FAERS Safety Report 6021929-7 (Version None)
Quarter: 2008Q4

REPORT INFORMATION
  Report Type: 
  Country: None (occurrence: None)
  Receive Date: 20081229
  Receipt Date: 20081218
  Transmission Date: 20090506
  Serious: Yes (Other)
  Sender: FDA-Public Use
  Company Number: JP-ASTRAZENECA-2008AP05749

PATIENT
  Age: 41 Year
  Sex: Male

DRUGS (1)
  1. FOSCAVIR [Suspect]
     Indication: CYTOMEGALOVIRUS INFECTION
     Dosage: 250 ML WAS ADMINISTERED AT NIGHT ON 15-JUL.
     Route: 041
     Dates: start: 20080710

REACTIONS (4)
  - BLOOD CREATININE INCREASED [None]
  - RENAL TUBULAR DISORDER [None]
  - RETINAL DETACHMENT [None]
  - VISUAL ACUITY REDUCED [None]
